FAERS Safety Report 6331542-X (Version None)
Quarter: 2009Q3

REPORT INFORMATION
  Report Type: 
  Country: None (occurrence: None)
  Receive Date: 20090827
  Receipt Date: 20090819
  Transmission Date: 20100115
  Serious: Yes (Hospitalization, Other)
  Sender: FDA-Public Use
  Company Number: US-AMGEN-QUU358940

PATIENT
  Sex: Female

DRUGS (1)
  1. ENBREL [Suspect]
     Indication: RHEUMATOID ARTHRITIS
     Route: 058
     Dates: start: 20010918

REACTIONS (8)
  - ARTHRALGIA [None]
  - ARTHRITIS INFECTIVE [None]
  - ARTHROPATHY [None]
  - LIMB DEFORMITY [None]
  - RASH ERYTHEMATOUS [None]
  - RASH PRURITIC [None]
  - RHEUMATOID ARTHRITIS [None]
  - SUBCUTANEOUS ABSCESS [None]
